FAERS Safety Report 18152432 (Version 1)
Quarter: 2020Q3

REPORT INFORMATION
  Report Type: Spontaneous
  Country: US (occurrence: US)
  Receive Date: 20200814
  Receipt Date: 20200814
  Transmission Date: 20201103
  Serious: No
  Sender: FDA-Public Use
  Company Number: US-TEVA-2020-US-1813817

PATIENT
  Age: 69 Year
  Sex: Female

DRUGS (1)
  1. SULINDAC TEVA [Suspect]
     Active Substance: SULINDAC
     Indication: SPINAL OSTEOARTHRITIS
     Dosage: 400 MILLIGRAM DAILY;
     Route: 065
     Dates: start: 20191015

REACTIONS (2)
  - Drug ineffective [Unknown]
  - Product substitution issue [Unknown]

NARRATIVE: CASE EVENT DATE: 20191015
